FAERS Safety Report 13813736 (Version 1)
Quarter: 2017Q3

REPORT INFORMATION
  Report Type: Spontaneous
  Country: US (occurrence: US)
  Receive Date: 20170728
  Receipt Date: 20170728
  Transmission Date: 20171127
  Serious: Yes (Hospitalization)
  Sender: FDA-Public Use
  Company Number: None

PATIENT
  Age: 61 Year
  Sex: Female

DRUGS (3)
  1. MAGNESIUM [Concomitant]
     Active Substance: MAGNESIUM
  2. CALCIUM W/VITAMIN D [Concomitant]
     Active Substance: CALCIUM\VITAMIN D
  3. TARCEVA [Suspect]
     Active Substance: ERLOTINIB HYDROCHLORIDE
     Indication: LUNG NEOPLASM MALIGNANT
     Dosage: DOSE - 3 TABLETS - 75 MG
     Route: 048
     Dates: start: 20161205

REACTIONS (3)
  - Drug dose omission [None]
  - Neoplasm malignant [None]
  - Disease complication [None]

NARRATIVE: CASE EVENT DATE: 20170724
